FAERS Safety Report 20626186 (Version 1)
Quarter: 2022Q1

REPORT INFORMATION
  Report Type: Spontaneous
  Country: CN (occurrence: CN)
  Receive Date: 20220323
  Receipt Date: 20220323
  Transmission Date: 20220423
  Serious: Yes (Other)
  Sender: FDA-Public Use
  Company Number: CN-SA-SAC20220316002074

PATIENT
  Age: 70 Year
  Sex: Male
  Weight: 53 kg

DRUGS (2)
  1. PLAVIX [Suspect]
     Active Substance: CLOPIDOGREL BISULFATE
     Indication: Antiplatelet therapy
     Dosage: 75 MG, QD
     Route: 048
     Dates: start: 20220304, end: 20220311
  2. ASPIRIN [Suspect]
     Active Substance: ASPIRIN
     Indication: Antiplatelet therapy
     Dosage: 100 MG, QD
     Route: 048
     Dates: start: 20220303, end: 20220311

REACTIONS (1)
  - Coagulation test abnormal [Unknown]

NARRATIVE: CASE EVENT DATE: 20220309
